FAERS Safety Report 9421219 (Version 3)
Quarter: 2013Q3

REPORT INFORMATION
  Report Type: Spontaneous
  Country: US (occurrence: US)
  Receive Date: 20130725
  Receipt Date: 20130909
  Transmission Date: 20140515
  Serious: No
  Sender: FDA-Public Use
  Company Number: US-009507513-1307USA006455

PATIENT
  Age: 32 Year
  Sex: Female
  Weight: 70.3 kg

DRUGS (2)
  1. IMPLANON [Suspect]
     Indication: CONTRACEPTION
     Dosage: UNK
     Route: 059
     Dates: start: 20130703, end: 20130703
  2. IMPLANON [Suspect]
     Dosage: 68 MG, UNK
     Route: 059
     Dates: start: 20130703

REACTIONS (5)
  - Skin turgor decreased [Unknown]
  - Device difficult to use [Unknown]
  - Product quality issue [Unknown]
  - Medical device complication [Recovered/Resolved]
  - Device deployment issue [Unknown]
